FAERS Safety Report 5549801-7 (Version None)
Quarter: 2007Q4

REPORT INFORMATION
  Report Type: 
  Country: None (occurrence: None)
  Receive Date: 20071210
  Receipt Date: 20071128
  Transmission Date: 20080405
  Serious: Yes (Hospitalization, Other)
  Sender: FDA-Public Use
  Company Number: 2007-03666

PATIENT
  Age: 74 Year
  Sex: Female
  Weight: 78 kg

DRUGS (7)
  1. VELCADE [Suspect]
     Indication: MULTIPLE MYELOMA
     Dosage: 1.30 MG/M2
     Dates: start: 20051010, end: 20051208
  2. THALOMID [Suspect]
     Indication: MULTIPLE MYELOMA
     Dosage: 200.00 MG, ORAL
     Route: 048
     Dates: start: 20050908, end: 20050921
  3. DECADRON [Suspect]
     Indication: MULTIPLE MYELOMA
     Dates: start: 20050908, end: 20050921
  4. VITAMIN B12 [Concomitant]
  5. PROCRIT [Concomitant]
  6. MORPHINE SULFATE [Concomitant]
  7. ZOMETA [Concomitant]

REACTIONS (15)
  - ASTHENIA [None]
  - CONSTIPATION [None]
  - DIZZINESS [None]
  - DYSPNOEA [None]
  - FATIGUE [None]
  - FULL BLOOD COUNT DECREASED [None]
  - HERPES SIMPLEX [None]
  - MALAISE [None]
  - MOBILITY DECREASED [None]
  - MUSCLE ABSCESS [None]
  - NO THERAPEUTIC RESPONSE [None]
  - SOMNOLENCE [None]
  - STAPHYLOCOCCAL SEPSIS [None]
  - UNEVALUABLE EVENT [None]
  - URINARY TRACT INFECTION [None]
